FAERS Safety Report 21727612 (Version 1)
Quarter: 2022Q4

REPORT INFORMATION
  Report Type: Spontaneous
  Country: EG (occurrence: EG)
  Receive Date: 20221214
  Receipt Date: 20221214
  Transmission Date: 20230113
  Serious: Yes (Other)
  Sender: FDA-Public Use
  Company Number: EG-PFIZER INC-202201356193

PATIENT
  Age: 12 Year
  Sex: Male

DRUGS (1)
  1. METHOTREXATE SODIUM [Suspect]
     Active Substance: METHOTREXATE SODIUM
     Indication: Alopecia areata
     Dosage: 2 ML, MONTHLY (50 MG/2ML, 0.01 ML/CM2 AT 2 CM INTERVALS)/SESSION: 3
     Route: 023

REACTIONS (3)
  - Injection site pain [Unknown]
  - Pain [Unknown]
  - Off label use [Unknown]
